FAERS Safety Report 16049530 (Version 2)
Quarter: 2019Q3

REPORT INFORMATION
  Report Type: Spontaneous
  Country: FR (occurrence: FR)
  Receive Date: 20190307
  Receipt Date: 20190911
  Transmission Date: 20191004
  Serious: Yes (Life-Threatening, Hospitalization, Other)
  Sender: FDA-Public Use
  Company Number: FR-NOVOPROD-649337

PATIENT
  Age: 64 Year
  Sex: Female
  Weight: 106 kg

DRUGS (11)
  1. VALIUM [Concomitant]
     Active Substance: DIAZEPAM
     Indication: PRODUCT USED FOR UNKNOWN INDICATION
     Dosage: UNK
     Route: 065
  2. SEROPLEX [Concomitant]
     Active Substance: ESCITALOPRAM OXALATE
     Indication: PRODUCT USED FOR UNKNOWN INDICATION
     Dosage: 1 DF, QD
     Route: 048
     Dates: start: 20160422, end: 20160423
  3. ESTRADIOL. [Suspect]
     Active Substance: ESTRADIOL
     Indication: SALPINGO-OOPHORECTOMY
     Dosage: UNK (11 YEARS)
     Route: 065
     Dates: start: 2005, end: 2016
  4. OLANZAPINE SANDOZ [Suspect]
     Active Substance: OLANZAPINE
     Indication: MAJOR DEPRESSION
     Dosage: 1 DF, QD
     Route: 048
     Dates: start: 20160413, end: 20160415
  5. OLANZAPINE SANDOZ [Suspect]
     Active Substance: OLANZAPINE
     Dosage: 1 DF, QD
     Route: 048
     Dates: start: 20160422, end: 20160423
  6. ESTRADIOL. [Suspect]
     Active Substance: ESTRADIOL
     Indication: HYSTERECTOMY
  7. SOLIAN [Concomitant]
     Active Substance: AMISULPRIDE
     Indication: PRODUCT USED FOR UNKNOWN INDICATION
     Dosage: 3 DF, QD
     Route: 048
     Dates: start: 20160415, end: 20160422
  8. SEROPLEX [Concomitant]
     Active Substance: ESCITALOPRAM OXALATE
     Indication: MENTAL DISORDER
     Dosage: 1 DF, QD
     Route: 048
     Dates: start: 20160413, end: 20160415
  9. LEPTICUR [Concomitant]
     Active Substance: TROPATEPINE HYDROCHLORIDE
     Indication: PRODUCT USED FOR UNKNOWN INDICATION
     Dosage: UNK
     Route: 065
  10. LEXOMIL [Concomitant]
     Active Substance: BROMAZEPAM
     Indication: PRODUCT USED FOR UNKNOWN INDICATION
     Dosage: 1 DF, QD
     Route: 048
     Dates: start: 20160413, end: 201605
  11. ANAFRANIL [Concomitant]
     Active Substance: CLOMIPRAMINE HYDROCHLORIDE
     Indication: PRODUCT USED FOR UNKNOWN INDICATION
     Dosage: 75 MG
     Route: 048
     Dates: start: 20160415, end: 20160422

REACTIONS (13)
  - Dyspnoea [Unknown]
  - Livedo reticularis [Unknown]
  - Cardiogenic shock [Unknown]
  - Phlebitis [Unknown]
  - Pulmonary embolism [Recovered/Resolved]
  - Ventricular dyskinesia [Unknown]
  - Circulatory collapse [Unknown]
  - Respiratory rate increased [Unknown]
  - Hypoxia [Unknown]
  - Product use in unapproved indication [Unknown]
  - Cor pulmonale acute [Unknown]
  - Right ventricular dilatation [Unknown]
  - Hypotension [Unknown]

NARRATIVE: CASE EVENT DATE: 2016
